FAERS Safety Report 6518307-0 (Version None)
Quarter: 2009Q4

REPORT INFORMATION
  Report Type: 
  Country: None (occurrence: None)
  Receive Date: 20091224
  Receipt Date: 20091218
  Transmission Date: 20100525
  Serious: Yes (Life-Threatening, Hospitalization, Other)
  Sender: FDA-Public Use
  Company Number: JP-GENENTECH-295073

PATIENT
  Sex: Male

DRUGS (1)
  1. ACTIVASE [Suspect]
     Indication: CEREBRAL INFARCTION
     Dosage: UNK
     Route: 065
     Dates: start: 20090620

REACTIONS (5)
  - ACUTE MYOCARDIAL INFARCTION [None]
  - CEREBRAL HAEMORRHAGE [None]
  - CEREBRAL INFARCTION [None]
  - CORONARY ARTERY OCCLUSION [None]
  - CORONARY ARTERY STENOSIS [None]
